FAERS Safety Report 11934700 (Version 1)
Quarter: 2016Q1

REPORT INFORMATION
  Report Type: Spontaneous
  Country: US (occurrence: None)
  Receive Date: 20160120
  Receipt Date: 20160120
  Transmission Date: 20160526
  Serious: Yes (Other)
  Sender: FDA-Public Use
  Company Number: None

PATIENT
  Age: 33 Year
  Sex: Female
  Weight: 58.97 kg

DRUGS (1)
  1. DOXYCYCLINE. [Suspect]
     Active Substance: DOXYCYCLINE
     Indication: UTERINE DISORDER
     Dosage: 1
     Route: 048
     Dates: start: 20160118, end: 20160119

REACTIONS (4)
  - Rash [None]
  - Feeling hot [None]
  - Skin discolouration [None]
  - Pruritus [None]

NARRATIVE: CASE EVENT DATE: 20160119
